FAERS Safety Report 7520103-2 (Version None)
Quarter: 2011Q2

REPORT INFORMATION
  Report Type: 
  Country: None (occurrence: None)
  Receive Date: 20110602
  Receipt Date: 20110526
  Transmission Date: 20111010
  Serious: Yes (Hospitalization)
  Sender: FDA-Public Use
  Company Number: CA-ROCHE-779625

PATIENT
  Sex: Female
  Weight: 48 kg

DRUGS (8)
  1. DOMPERIDONE [Concomitant]
  2. LEVOTHYROXINE SODIUM [Concomitant]
  3. CELEBREX [Concomitant]
  4. MORPHINE [Concomitant]
  5. ASPIRIN [Concomitant]
  6. PREMARIN [Concomitant]
  7. TOCILIZUMAB [Suspect]
     Indication: RHEUMATOID ARTHRITIS
     Dosage: OTHER INDICATION: OSTEO ARTHRITIS.
     Route: 042
     Dates: start: 20110504
  8. PLAQUENIL [Concomitant]
     Dosage: DOSAGE REPORTED AS 200 MG AND 400 MG

REACTIONS (1)
  - PANCREATITIS ACUTE [None]
